FAERS Safety Report 5675466-X (Version None)
Quarter: 2008Q1

REPORT INFORMATION
  Report Type: 
  Country: None (occurrence: None)
  Receive Date: 20080321
  Receipt Date: 20071227
  Transmission Date: 20080703
  Serious: No
  Sender: FDA-Public Use
  Company Number: A0700567A

PATIENT
  Sex: Female

DRUGS (4)
  1. AVANDARYL [Suspect]
     Dosage: 1TAB TWICE PER DAY
     Route: 048
     Dates: start: 20071218
  2. ADALAT [Concomitant]
  3. METOPROLOL TARTRATE [Concomitant]
  4. PAIN MEDICATION [Concomitant]

REACTIONS (1)
  - DRUG INEFFECTIVE [None]
